FAERS Safety Report 8433427-1 (Version None)
Quarter: 2012Q2

REPORT INFORMATION
  Report Type: 
  Country: None (occurrence: None)
  Receive Date: 20120613
  Receipt Date: 20120601
  Transmission Date: 20120825
  Serious: Yes (Life-Threatening, Hospitalization, Other)
  Sender: FDA-Public Use
  Company Number: BR-BRISTOL-MYERS SQUIBB COMPANY-16666026

PATIENT
  Age: 68 Year
  Sex: Male
  Weight: 64 kg

DRUGS (4)
  1. REYATAZ [Suspect]
     Indication: HIV INFECTION
     Dates: start: 20060101
  2. LAMIVUDINE [Suspect]
     Indication: HIV INFECTION
     Dates: start: 20030101
  3. TENOFOVIR DISOPROXIL FUMARATE [Suspect]
     Indication: HIV INFECTION
     Dates: start: 20060101
  4. RITONAVIR [Suspect]
     Indication: HIV INFECTION
     Dates: start: 20060101

REACTIONS (6)
  - ORAL DISORDER [None]
  - WEIGHT DECREASED [None]
  - ACUTE MYOCARDIAL INFARCTION [None]
  - JAUNDICE [None]
  - SCRATCH [None]
  - DEPRESSION [None]
